FAERS Safety Report 10415409 (Version 3)
Quarter: 2014Q3

REPORT INFORMATION
  Report Type: Spontaneous
  Country: US (occurrence: US)
  Receive Date: 20140828
  Receipt Date: 20140828
  Transmission Date: 20150326
  Serious: No
  Sender: FDA-Public Use
  Company Number: US-GALDERMA-US14002209

PATIENT
  Age: 27 Year
  Sex: Female

DRUGS (5)
  1. PLIAGLIS [Suspect]
     Active Substance: LIDOCAINE\TETRACAINE
     Dosage: 7%/7%
     Route: 061
     Dates: start: 201406, end: 201406
  2. CERAVE FOAMING FACIAL CLEANSER [Concomitant]
     Active Substance: OCTINOXATE\TITANIUM DIOXIDE\ZINC OXIDE
     Indication: ACNE
     Route: 061
     Dates: start: 2013
  3. PLIAGLIS [Suspect]
     Active Substance: LIDOCAINE\TETRACAINE
     Indication: APPLICATION SITE ANAESTHESIA
     Dosage: 7%/7%
     Route: 061
     Dates: start: 20140530, end: 20140530
  4. ELTA MD FACE CLEANSER [Concomitant]
     Active Substance: COSMETICS
     Indication: ACNE
     Route: 061
  5. TAZORAC [Concomitant]
     Active Substance: TAZAROTENE
     Indication: ACNE
     Route: 061
     Dates: start: 2012

REACTIONS (6)
  - Pruritus [Recovered/Resolved]
  - Erythema [Recovered/Resolved]
  - Skin exfoliation [Recovered/Resolved]
  - Sensation of blood flow [Recovered/Resolved]
  - Swelling face [Recovered/Resolved]
  - Feeling hot [Recovered/Resolved]

NARRATIVE: CASE EVENT DATE: 20140530
